FAERS Safety Report 5080458-8 (Version None)
Quarter: 2006Q3

REPORT INFORMATION
  Report Type: 
  Country: None (occurrence: None)
  Receive Date: 20060815
  Receipt Date: 20060808
  Transmission Date: 20061208
  Serious: Yes (Hospitalization)
  Sender: FDA-Public Use
  Company Number: US-BRISTOL-MYERS SQUIBB COMPANY-13469697

PATIENT
  Age: 57 Year
  Sex: Female
  Weight: 75 kg

DRUGS (9)
  1. CISPLATIN [Suspect]
     Indication: SQUAMOUS CELL CARCINOMA
     Route: 042
     Dates: start: 20060705, end: 20060705
  2. RADIATION THERAPY [Suspect]
     Indication: SQUAMOUS CELL CARCINOMA
  3. COMPAZINE [Concomitant]
  4. HYDROCODONE BITARTRATE [Concomitant]
  5. PROCRIT [Concomitant]
  6. ZOFRAN [Concomitant]
  7. DIFLUCAN [Concomitant]
  8. PROTONIX [Concomitant]
  9. MAGNESIUM OXIDE [Concomitant]

REACTIONS (1)
  - DEHYDRATION [None]
